FAERS Safety Report 11800542 (Version 1)
Quarter: 2015Q4

REPORT INFORMATION
  Report Type: Other
  Country: GR (occurrence: GR)
  Receive Date: 20151203
  Receipt Date: 20151203
  Transmission Date: 20160305
  Serious: Yes (Death, Hospitalization)
  Sender: FDA-Public Use
  Company Number: GR-FRI-1000081225

PATIENT

DRUGS (4)
  1. AMINOGLYCOSIDE [Suspect]
     Active Substance: UNSPECIFIED INGREDIENT
  2. FOSFOMYCIN [Suspect]
     Active Substance: FOSFOMYCIN
  3. TIGECYCLINE. [Suspect]
     Active Substance: TIGECYCLINE
  4. COLISTIN [Suspect]
     Active Substance: COLISTIN

REACTIONS (1)
  - Death [Fatal]
